FAERS Safety Report 22541530 (Version 1)
Quarter: 2023Q2

REPORT INFORMATION
  Report Type: Spontaneous
  Country: US (occurrence: US)
  Receive Date: 20230609
  Receipt Date: 20230609
  Transmission Date: 20230722
  Serious: No
  Sender: FDA-Public Use
  Company Number: US-SA-SAC20230606001426

PATIENT
  Age: 15 Year
  Sex: Female
  Weight: 41 kg

DRUGS (11)
  1. DUPIXENT [Suspect]
     Active Substance: DUPILUMAB
     Indication: Dermatitis atopic
     Dosage: 400 MG, 1X
     Route: 058
  2. FLUOCINONIDE [Concomitant]
     Active Substance: FLUOCINONIDE
  3. TUMS [Concomitant]
     Active Substance: CALCIUM CARBONATE
  4. OLOPATADINE HYDROCHLORIDE [Concomitant]
     Active Substance: OLOPATADINE HYDROCHLORIDE
  5. CETIRIZINE HCL [Concomitant]
     Active Substance: CETIRIZINE HYDROCHLORIDE
  6. ACETAMINOPHEN [Concomitant]
     Active Substance: ACETAMINOPHEN
  7. MOMETASONE FUROATE [Concomitant]
     Active Substance: MOMETASONE FUROATE
  8. DESONIDE [Concomitant]
     Active Substance: DESONIDE
  9. TRETINOIN [Concomitant]
     Active Substance: TRETINOIN
  10. PIMECROLIMUS [Concomitant]
     Active Substance: PIMECROLIMUS
  11. WAL-PROFEN COLD AND SINUS [Concomitant]

REACTIONS (1)
  - Rash [Unknown]

NARRATIVE: CASE EVENT DATE: 20230528
